FAERS Safety Report 6929977-7 (Version None)
Quarter: 2010Q3

REPORT INFORMATION
  Report Type: 
  Country: None (occurrence: None)
  Receive Date: 20100818
  Receipt Date: 20100810
  Transmission Date: 20110219
  Serious: Yes (Hospitalization)
  Sender: FDA-Public Use
  Company Number: CA-AMGEN-QUU430680

PATIENT
  Age: 61 Year
  Sex: Female
  Weight: 87 kg

DRUGS (12)
  1. NEUPOGEN [Suspect]
     Indication: PRODUCT USED FOR UNKNOWN INDICATION
     Route: 058
  2. CYCLOPHOSPHAMIDE [Concomitant]
     Route: 065
  3. DEXAMETHASONE [Concomitant]
     Route: 048
  4. EMEND [Concomitant]
     Route: 048
  5. EPIRUBICIN HYDROCHLORIDE [Concomitant]
     Route: 065
  6. FLUOROURACIL [Concomitant]
     Route: 065
  7. GRANISETRON HCL [Concomitant]
     Route: 048
  8. LIPITOR [Concomitant]
     Route: 065
  9. LORAZEPAM [Concomitant]
     Route: 065
  10. MELOXICAM [Concomitant]
     Route: 065
  11. PROCHLORPERAZINE [Concomitant]
     Route: 065
  12. LEVOTHYROXINE SODIUM [Concomitant]
     Route: 065

REACTIONS (3)
  - DYSPNOEA [None]
  - FLUSHING [None]
  - THROAT TIGHTNESS [None]
